FAERS Safety Report 26082950 (Version 1)
Quarter: 2025Q4

REPORT INFORMATION
  Report Type: Report from Study
  Country: EU (occurrence: EU)
  Receive Date: 20251124
  Receipt Date: 20251124
  Transmission Date: 20260118
  Serious: Yes (Other)
  Sender: ABBVIE
  Company Number: EU-ABBVIE-6560249

PATIENT

DRUGS (28)
  1. IMBRUVICA [Suspect]
     Active Substance: IBRUTINIB
     Indication: Mantle cell lymphoma
     Route: 048
  2. ALOE VERA LEAF [Concomitant]
     Active Substance: ALOE VERA LEAF
     Indication: Product used for unknown indication
  3. AMIODARONE [Interacting]
     Active Substance: AMIODARONE
     Indication: Product used for unknown indication
     Route: 065
  4. APIXABAN [Concomitant]
     Active Substance: APIXABAN
     Indication: Product used for unknown indication
  5. CARBAMAZEPINE [Concomitant]
     Active Substance: CARBAMAZEPINE
     Indication: Product used for unknown indication
  6. DICLOFENAC [Concomitant]
     Active Substance: DICLOFENAC
     Indication: Product used for unknown indication
  7. DILTIAZEM [Interacting]
     Active Substance: DILTIAZEM
     Indication: Product used for unknown indication
     Route: 065
  8. DULOXETINE [Concomitant]
     Active Substance: DULOXETINE
     Indication: Product used for unknown indication
  9. ESCITALOPRAM [Concomitant]
     Active Substance: ESCITALOPRAM OXALATE
     Indication: Product used for unknown indication
  10. FLUOXETINE [Concomitant]
     Active Substance: FLUOXETINE HYDROCHLORIDE
     Indication: Product used for unknown indication
  11. Ginger and turmeric [Concomitant]
     Indication: Product used for unknown indication
  12. GRAPEFRUIT [Concomitant]
     Active Substance: GRAPEFRUIT
     Indication: Product used for unknown indication
  13. HERBALS\LINSEED OIL [Concomitant]
     Active Substance: HERBALS\LINSEED OIL
     Indication: Product used for unknown indication
  14. LOPERAMIDE [Interacting]
     Active Substance: LOPERAMIDE
     Indication: Product used for unknown indication
     Route: 065
  15. .ALPHA.-TOCOPHEROL ACETATE, D-\EVENING PRIMROSE OIL\FISH OIL [Concomitant]
     Active Substance: .ALPHA.-TOCOPHEROL ACETATE, D-\EVENING PRIMROSE OIL\FISH OIL
     Indication: Product used for unknown indication
  16. PAROXETINE [Concomitant]
     Active Substance: PAROXETINE
     Indication: Product used for unknown indication
  17. PHENOBARBITAL [Interacting]
     Active Substance: PHENOBARBITAL
     Indication: Product used for unknown indication
     Route: 065
  18. PROPOLIS WAX [Concomitant]
     Active Substance: PROPOLIS WAX
     Indication: Product used for unknown indication
  19. HERBALS\PLANTAGO OVATA SEED COAT [Concomitant]
     Active Substance: HERBALS\PLANTAGO OVATA SEED COAT
     Indication: Product used for unknown indication
  20. RIVAROXABAN [Concomitant]
     Active Substance: RIVAROXABAN
     Indication: Product used for unknown indication
  21. SERTRALINE [Concomitant]
     Active Substance: SERTRALINE HYDROCHLORIDE
     Indication: Product used for unknown indication
  22. SILODOSIN [Concomitant]
     Active Substance: SILODOSIN
     Indication: Product used for unknown indication
  23. SITAGLIPTIN HYDROCHLORIDE [Interacting]
     Active Substance: SITAGLIPTIN HYDROCHLORIDE
     Indication: Product used for unknown indication
     Route: 065
  24. SPIRULINA + ACEROLA Y ZINC [Concomitant]
     Indication: Product used for unknown indication
  25. HERBALS\TURMERIC [Concomitant]
     Active Substance: HERBALS\TURMERIC
     Indication: Product used for unknown indication
  26. VENLAFAXINE [Concomitant]
     Active Substance: VENLAFAXINE HYDROCHLORIDE
     Indication: Product used for unknown indication
  27. VERAPAMIL [Concomitant]
     Active Substance: VERAPAMIL HYDROCHLORIDE
     Indication: Product used for unknown indication
  28. VITAMIN E [Concomitant]
     Active Substance: .ALPHA.-TOCOPHEROL
     Indication: Product used for unknown indication

REACTIONS (44)
  - Skin disorder [Unknown]
  - Musculoskeletal disorder [Unknown]
  - Mediastinal disorder [Unknown]
  - Inner ear disorder [Unknown]
  - Injury [Unknown]
  - Infestation [Unknown]
  - Hypotension [Unknown]
  - Hypertension [Unknown]
  - Haematoma [Unknown]
  - Cardiac failure [Unknown]
  - Treatment noncompliance [Unknown]
  - Thrombosis [Unknown]
  - Tachycardia [Unknown]
  - Cerebrovascular accident [Unknown]
  - Respiratory disorder [Unknown]
  - Renal disorder [Unknown]
  - Mental disorder [Unknown]
  - Procedural complication [Unknown]
  - Polyp [Unknown]
  - Poisoning [Unknown]
  - Nervous system disorder [Unknown]
  - Gastrointestinal disorder [Unknown]
  - Eye disorder [Unknown]
  - Enzyme induction [Unknown]
  - Drug interaction [Unknown]
  - Drug interaction [Unknown]
  - Drug interaction [Unknown]
  - Enzyme inhibition [Unknown]
  - Enzyme induction [Unknown]
  - Enzyme inhibition [Unknown]
  - Cyst [Unknown]
  - Connective tissue disorder [Unknown]
  - Contusion [Unknown]
  - Blood disorder [Unknown]
  - Haemorrhage [Unknown]
  - Benign neoplasm [Unknown]
  - Arrhythmia [Unknown]
  - Ear disorder [Unknown]
  - Enzyme inhibition [Unknown]
  - Drug interaction [Unknown]
  - Administration site reaction [Unknown]
  - Infection [Unknown]
  - Lymphatic disorder [Unknown]
  - Cytopenia [Unknown]
